FAERS Safety Report 7867195-9 (Version None)
Quarter: 2011Q4

REPORT INFORMATION
  Report Type: 
  Country: None (occurrence: None)
  Receive Date: 20111028
  Receipt Date: 20111018
  Transmission Date: 20120403
  Serious: Yes (Hospitalization)
  Sender: FDA-Public Use
  Company Number: DE-VIIV HEALTHCARE LIMITED-A0950561A

PATIENT
  Sex: Female

DRUGS (4)
  1. COMBIVIR [Suspect]
     Indication: ANTIVIRAL TREATMENT
     Route: 048
     Dates: start: 20110412, end: 20110701
  2. NORVIR [Suspect]
     Indication: ANTIVIRAL TREATMENT
     Dosage: 100MGD PER DAY
     Route: 048
     Dates: start: 20110618
  3. KALETRA [Suspect]
     Indication: ANTIVIRAL TREATMENT
     Route: 048
     Dates: start: 20110412, end: 20110618
  4. REYATAZ [Suspect]
     Indication: ANTIVIRAL TREATMENT
     Dosage: 300MGD PER DAY
     Route: 048
     Dates: start: 20110618

REACTIONS (3)
  - MATERNAL EXPOSURE DURING PREGNANCY [None]
  - BLOOD BILIRUBIN ABNORMAL [None]
  - CYTOMEGALOVIRUS INFECTION [None]
